FAERS Safety Report 17117024 (Version 1)
Quarter: 2019Q4

REPORT INFORMATION
  Report Type: Spontaneous
  Country: US (occurrence: US)
  Receive Date: 20191205
  Receipt Date: 20191205
  Transmission Date: 20200122
  Serious: Yes (Hospitalization, Other)
  Sender: FDA-Public Use
  Company Number: US-GILEAD-2019-0441120

PATIENT
  Age: 67 Year
  Sex: Male
  Weight: 89.3 kg

DRUGS (1)
  1. YESCARTA [Suspect]
     Active Substance: AXICABTAGENE CILOLEUCEL
     Indication: PRODUCT USED FOR UNKNOWN INDICATION
     Dosage: UNK
     Route: 065
     Dates: start: 20190514, end: 20190514

REACTIONS (1)
  - CAR T-cell-related encephalopathy syndrome [Recovered/Resolved]

NARRATIVE: CASE EVENT DATE: 20190524
